FAERS Safety Report 8187619-X (Version None)
Quarter: 2012Q1

REPORT INFORMATION
  Report Type: 
  Country: None (occurrence: None)
  Receive Date: 20120306
  Receipt Date: 20120302
  Transmission Date: 20120608
  Serious: No
  Sender: FDA-Public Use
  Company Number: US-BAYER-2012-021535

PATIENT
  Age: 26 Year
  Sex: Male

DRUGS (3)
  1. LEVITRA [Suspect]
     Dosage: UNK
     Dates: start: 20120217
  2. LEVITRA [Suspect]
     Indication: ERECTILE DYSFUNCTION
     Dosage: 20 MG, UNK
     Route: 048
     Dates: start: 20120101, end: 20120101
  3. LEVITRA [Suspect]
     Dosage: 20 MG, UNK
     Route: 048
     Dates: start: 20120301, end: 20120301

REACTIONS (1)
  - ERECTILE DYSFUNCTION [None]
